FAERS Safety Report 10022950 (Version 1)
Quarter: 2014Q1

REPORT INFORMATION
  Report Type: Spontaneous
  Country: US (occurrence: US)
  Receive Date: 20140319
  Receipt Date: 20140319
  Transmission Date: 20141002
  Serious: No
  Sender: FDA-Public Use
  Company Number: US-SA-2014SA020729

PATIENT
  Age: 35 Year
  Sex: Female

DRUGS (2)
  1. NASACORT ALLERGY [Suspect]
     Indication: SINUS DISORDER
     Dosage: DOSE: 2 SPRAYS EA. NOSTRIL
     Route: 045
     Dates: start: 20140214, end: 20140214
  2. NASACORT ALLERGY [Suspect]
     Indication: HYPERSENSITIVITY
     Dosage: DOSE: 2 SPRAYS EA. NOSTRIL
     Route: 045
     Dates: start: 20140214, end: 20140214

REACTIONS (1)
  - Migraine [Recovered/Resolved]
